FAERS Safety Report 5077255-6 (Version None)
Quarter: 2006Q3

REPORT INFORMATION
  Report Type: 
  Country: None (occurrence: None)
  Receive Date: 20060810
  Receipt Date: 20060112
  Transmission Date: 20061208
  Serious: No
  Sender: FDA-Public Use
  Company Number: US-GLAXOSMITHKLINE-A0589034A

PATIENT
  Age: 60 Year
  Sex: Female

DRUGS (3)
  1. PAROXETINE HCL [Suspect]
     Indication: FIBROMYALGIA
     Dosage: 20MG PER DAY
     Route: 048
  2. TAMOXIFEN CITRATE [Concomitant]
  3. LIPITOR [Concomitant]

REACTIONS (4)
  - ASTHENIA [None]
  - MUSCLE TIGHTNESS [None]
  - MUSCULOSKELETAL STIFFNESS [None]
  - SLEEP DISORDER [None]
